FAERS Safety Report 7878895-9 (Version None)
Quarter: 2011Q4

REPORT INFORMATION
  Report Type: 
  Country: None (occurrence: None)
  Receive Date: 20111025
  Receipt Date: 20101006
  Transmission Date: 20120403
  Serious: Yes (Other)
  Sender: FDA-Public Use
  Company Number: 2010BH025217

PATIENT
  Sex: Male
  Weight: 14 kg

DRUGS (1)
  1. ADVATE [Suspect]
     Indication: FACTOR VIII DEFICIENCY
     Dosage: Q OTHER DY;IV
     Route: 042
     Dates: start: 20070101

REACTIONS (1)
  - FACTOR VIII INHIBITION [None]
